FAERS Safety Report 24554177 (Version 1)
Quarter: 2024Q4

REPORT INFORMATION
  Report Type: Spontaneous
  Country: FR (occurrence: FR)
  Receive Date: 20241028
  Receipt Date: 20241028
  Transmission Date: 20250114
  Serious: Yes (Other)
  Sender: BRISTOL-MYERS SQUIBB COMPANY
  Company Number: None

PATIENT
  Age: 36 Year
  Sex: Male
  Weight: 85 kg

DRUGS (2)
  1. NIVOLUMAB [Suspect]
     Active Substance: NIVOLUMAB
     Indication: Neoplasm malignant
     Route: 042
     Dates: start: 20210726
  2. IPILIMUMAB [Suspect]
     Active Substance: IPILIMUMAB
     Indication: Neoplasm malignant
     Route: 042
     Dates: start: 20240726

REACTIONS (1)
  - Hepatic cytolysis [Not Recovered/Not Resolved]

NARRATIVE: CASE EVENT DATE: 20210802
